FAERS Safety Report 18975367 (Version 1)
Quarter: 2021Q1

REPORT INFORMATION
  Report Type: Spontaneous
  Country: US (occurrence: US)
  Receive Date: 20210305
  Receipt Date: 20210305
  Transmission Date: 20210420
  Serious: No
  Sender: FDA-Public Use
  Company Number: US-MYLANLABS-2021M1012033

PATIENT
  Sex: Female

DRUGS (1)
  1. FONDAPARINUX SODIUM INJECTION, USP [Suspect]
     Active Substance: FONDAPARINUX SODIUM
     Indication: PRODUCT USED FOR UNKNOWN INDICATION
     Dosage: UNK (7.5/0.6 MILLIGRAM PER MILLILITRE)

REACTIONS (2)
  - Product storage error [Not Recovered/Not Resolved]
  - Liquid product physical issue [Not Recovered/Not Resolved]
